FAERS Safety Report 17332244 (Version 2)
Quarter: 2020Q1

REPORT INFORMATION
  Report Type: Report from Study
  Country: BR (occurrence: BR)
  Receive Date: 20200127
  Receipt Date: 20200210
  Transmission Date: 20200409
  Serious: Yes (Death)
  Sender: FDA-Public Use
  Company Number: BR-UCBSA-2019027857

PATIENT
  Age: 59 Year
  Sex: Female
  Weight: 80 kg

DRUGS (5)
  1. CERTOLIZUMAB PEGOL ASP [Suspect]
     Active Substance: CERTOLIZUMAB PEGOL
     Indication: ANKYLOSING SPONDYLITIS
     Dosage: 200 MILLIGRAM, EV 15 DAYS
     Route: 058
     Dates: start: 201905, end: 20191015
  2. LORIVAN [Concomitant]
     Active Substance: LORAZEPAM
     Indication: COAGULOPATHY
     Dosage: UNK, ONCE DAILY (QD)
     Route: 048
  3. SULFASALAZINE. [Concomitant]
     Active Substance: SULFASALAZINE
     Indication: PRODUCT USED FOR UNKNOWN INDICATION
     Dosage: 500 MILLIGRAM, ONCE DAILY (QD)
     Route: 048
  4. TILATIL [Concomitant]
     Active Substance: TENOXICAM
     Indication: PRODUCT USED FOR UNKNOWN INDICATION
  5. TILESTAL [Concomitant]
     Indication: SPONDYLITIS
     Dosage: 100 MILLIGRAM, ONCE DAILY (QD)
     Route: 048

REACTIONS (5)
  - Nausea [Recovering/Resolving]
  - Dry mouth [Recovering/Resolving]
  - Haemorrhage [Fatal]
  - Malaise [Unknown]
  - Cardiac disorder [Fatal]

NARRATIVE: CASE EVENT DATE: 2019
